FAERS Safety Report 17636142 (Version 9)
Quarter: 2022Q4

REPORT INFORMATION
  Report Type: Spontaneous
  Country: CA (occurrence: CA)
  Receive Date: 20200407
  Receipt Date: 20221202
  Transmission Date: 20230113
  Serious: Yes (Hospitalization)
  Sender: FDA-Public Use
  Company Number: CA-009507513-2004CAN001312

PATIENT
  Age: 56 Year
  Sex: Female

DRUGS (85)
  1. EMEND [Suspect]
     Active Substance: APREPITANT
     Indication: Vomiting
     Dosage: 80.0 MILLIGRAM, 1 EVERY 1 DAYS
     Route: 048
  2. EMEND [Suspect]
     Active Substance: APREPITANT
     Indication: Nausea
     Dosage: 5 MG, 1 EVERY 1 DAY
     Route: 048
  3. DIMENHYDRINATE [Suspect]
     Active Substance: DIMENHYDRINATE
     Indication: Vomiting
     Dosage: DOSAGE FORM NOT SPECIFIED
     Route: 048
  4. DIMENHYDRINATE [Suspect]
     Active Substance: DIMENHYDRINATE
     Indication: Nausea
     Dosage: DOSAGE FORM NOT SPECIFIED
     Route: 048
  5. DIMENHYDRINATE [Suspect]
     Active Substance: DIMENHYDRINATE
     Dosage: DOSAGE FORM NOT SPECIFIED
     Route: 048
  6. DIMENHYDRINATE [Suspect]
     Active Substance: DIMENHYDRINATE
     Dosage: DOSAGE FORM NOT SPECIFIED
     Route: 048
  7. DIMENHYDRINATE [Suspect]
     Active Substance: DIMENHYDRINATE
     Dosage: DOSAGE FORM NOT SPECIFIED
     Route: 065
  8. DOMPERIDONE MALEATE [Suspect]
     Active Substance: DOMPERIDONE MALEATE
     Indication: Vomiting
     Dosage: UNK
     Route: 048
  9. DOMPERIDONE MALEATE [Suspect]
     Active Substance: DOMPERIDONE MALEATE
     Indication: Nausea
     Dosage: UNK
     Route: 048
  10. DOMPERIDONE MALEATE [Suspect]
     Active Substance: DOMPERIDONE MALEATE
     Dosage: UNK
     Route: 048
  11. DOMPERIDONE MALEATE [Suspect]
     Active Substance: DOMPERIDONE MALEATE
     Dosage: UNK
     Route: 065
  12. METOCLOPRAMIDE [Suspect]
     Active Substance: METOCLOPRAMIDE
     Indication: Vomiting
     Dosage: DOSAGE FROM NOT SPECIFIED
     Route: 048
  13. METOCLOPRAMIDE [Suspect]
     Active Substance: METOCLOPRAMIDE
     Indication: Nausea
     Dosage: DOSAGE FROM NOT SPECIFIED
     Route: 048
  14. METOCLOPRAMIDE [Suspect]
     Active Substance: METOCLOPRAMIDE
     Dosage: DOSAGE FROM NOT SPECIFIED
     Route: 048
  15. METOCLOPRAMIDE [Suspect]
     Active Substance: METOCLOPRAMIDE
     Dosage: DOSAGE FROM NOT SPECIFIED
     Route: 065
  16. METOCLOPRAMIDE HYDROCHLORIDE [Suspect]
     Active Substance: METOCLOPRAMIDE HYDROCHLORIDE
     Indication: Vomiting
     Dosage: UNK
     Route: 065
  17. METOCLOPRAMIDE HYDROCHLORIDE [Suspect]
     Active Substance: METOCLOPRAMIDE HYDROCHLORIDE
     Indication: Nausea
     Dosage: UNK
     Route: 065
  18. NABILONE [Suspect]
     Active Substance: NABILONE
     Indication: Vomiting
     Dosage: 0.5 MILLIGRAM, 2 EVERY 1 DAYS, DOSAGE FORM NOT SPECIFIED
     Route: 065
  19. NABILONE [Suspect]
     Active Substance: NABILONE
     Indication: Nausea
     Dosage: 0.5 MILLIGRAM, 2 EVERY 1 DAYS, DOSAGE FORM NOT SPECIFIED
     Route: 065
  20. NABILONE [Suspect]
     Active Substance: NABILONE
     Dosage: 0.5 MILLIGRAM, 2 EVERY 1 DAYS, DOSAGE FORM NOT SPECIFIED
     Route: 065
  21. NABILONE [Suspect]
     Active Substance: NABILONE
     Dosage: 0.5 MILLIGRAM, 2 EVERY 1 DAYS, DOSAGE FORM NOT SPECIFIED
     Route: 065
  22. NABILONE [Suspect]
     Active Substance: NABILONE
     Dosage: 0.5 MILLIGRAM, 2 EVERY 1 DAYS,
     Route: 065
  23. NABILONE [Suspect]
     Active Substance: NABILONE
     Dosage: 5 MILLIGRAM, 2 EVERY 1 DAYS,  DOSAGE FORM NOT SPECIFIED
     Route: 065
  24. OLANZAPINE [Suspect]
     Active Substance: OLANZAPINE
     Indication: Vomiting
     Dosage: DOSAGE FORM NOT SPECIFIED
     Route: 048
  25. OLANZAPINE [Suspect]
     Active Substance: OLANZAPINE
     Indication: Nausea
     Dosage: UNK
     Route: 048
  26. OLANZAPINE [Suspect]
     Active Substance: OLANZAPINE
     Dosage: DOSAGE FORM NOT SPECIFIED
     Route: 048
  27. OLANZAPINE [Suspect]
     Active Substance: OLANZAPINE
     Dosage: UNK
     Route: 048
  28. OLANZAPINE [Suspect]
     Active Substance: OLANZAPINE
     Dosage: DOSAGE FORM NOT SPECIFIED
     Route: 048
  29. OLANZAPINE [Suspect]
     Active Substance: OLANZAPINE
     Dosage: UNK
     Route: 048
  30. OLANZAPINE [Suspect]
     Active Substance: OLANZAPINE
     Dosage: DOSAGE FORM NOT SPECIFIED
     Route: 048
  31. OLANZAPINE [Suspect]
     Active Substance: OLANZAPINE
     Dosage: UNK
     Route: 048
  32. OLANZAPINE [Suspect]
     Active Substance: OLANZAPINE
     Dosage: UNK
     Route: 065
  33. ONDANSETRON [Suspect]
     Active Substance: ONDANSETRON
     Indication: Vomiting
     Dosage: 8.0 MILLIGRAM, 2 EVERY 1 DAYS, DOSAGE FROM NOT SPECIFIED
     Route: 048
  34. ONDANSETRON [Suspect]
     Active Substance: ONDANSETRON
     Indication: Nausea
     Dosage: UNK
     Route: 065
  35. ONDANSETRON [Suspect]
     Active Substance: ONDANSETRON
     Dosage: 8.0 MILLIGRAM, 2 EVERY 1 DAYS, DOSAGE FROM NOT SPECIFIED
     Route: 048
  36. ONDANSETRON [Suspect]
     Active Substance: ONDANSETRON
     Dosage: UNK
     Route: 065
  37. ONDANSETRON [Suspect]
     Active Substance: ONDANSETRON
     Dosage: 8.0 MILLIGRAM, 2 EVERY 1 DAYS, DOSAGE FROM NOT SPECIFIED
     Route: 048
  38. ONDANSETRON [Suspect]
     Active Substance: ONDANSETRON
     Dosage: UNK
     Route: 065
  39. ONDANSETRON [Suspect]
     Active Substance: ONDANSETRON
     Dosage: 8.0 MILLIGRAM, 2 EVERY 1 DAYS, DOSAGE FROM NOT SPECIFIED
     Route: 048
  40. ONDANSETRON [Suspect]
     Active Substance: ONDANSETRON
     Dosage: UNK
     Route: 065
  41. ONDANSETRON HYDROCHLORIDE [Suspect]
     Active Substance: ONDANSETRON HYDROCHLORIDE
     Indication: Vomiting
     Route: 065
  42. ONDANSETRON HYDROCHLORIDE [Suspect]
     Active Substance: ONDANSETRON HYDROCHLORIDE
     Indication: Nausea
     Dosage: UNK
     Route: 065
  43. ONDANSETRON HYDROCHLORIDE [Suspect]
     Active Substance: ONDANSETRON HYDROCHLORIDE
     Route: 065
  44. ONDANSETRON HYDROCHLORIDE [Suspect]
     Active Substance: ONDANSETRON HYDROCHLORIDE
     Dosage: UNK
     Route: 065
  45. ONDANSETRON HYDROCHLORIDE [Suspect]
     Active Substance: ONDANSETRON HYDROCHLORIDE
     Route: 065
  46. ONDANSETRON HYDROCHLORIDE [Suspect]
     Active Substance: ONDANSETRON HYDROCHLORIDE
     Dosage: UNK
     Route: 065
  47. ONDANSETRON HYDROCHLORIDE [Suspect]
     Active Substance: ONDANSETRON HYDROCHLORIDE
     Route: 065
  48. ONDANSETRON HYDROCHLORIDE [Suspect]
     Active Substance: ONDANSETRON HYDROCHLORIDE
     Dosage: UNK
     Route: 065
  49. PANTOPRAZOLE [Suspect]
     Active Substance: PANTOPRAZOLE
     Indication: Nausea
     Dosage: UNK
     Route: 048
  50. PANTOPRAZOLE [Suspect]
     Active Substance: PANTOPRAZOLE
     Indication: Vomiting
     Dosage: UNK
     Route: 065
  51. PANTOPRAZOLE MAGNESIUM [Suspect]
     Active Substance: PANTOPRAZOLE MAGNESIUM
     Indication: Vomiting
     Dosage: DOSAGE FORM: TABLET (ENTERIC-COATED)
     Route: 065
  52. PANTOPRAZOLE MAGNESIUM [Suspect]
     Active Substance: PANTOPRAZOLE MAGNESIUM
     Indication: Nausea
  53. PANTOPRAZOLE SODIUM [Suspect]
     Active Substance: PANTOPRAZOLE SODIUM
     Indication: Vomiting
     Dosage: UNK
     Route: 065
  54. PANTOPRAZOLE SODIUM [Suspect]
     Active Substance: PANTOPRAZOLE SODIUM
     Indication: Nausea
     Dosage: UNK
     Route: 065
  55. PANTOPRAZOLE SODIUM [Suspect]
     Active Substance: PANTOPRAZOLE SODIUM
     Dosage: UNK
     Route: 065
  56. PANTOPRAZOLE SODIUM [Suspect]
     Active Substance: PANTOPRAZOLE SODIUM
     Dosage: UNK
     Route: 065
  57. PROCHLORPERAZINE [Suspect]
     Active Substance: PROCHLORPERAZINE
     Indication: Nausea
     Dosage: DOSAGE FORM NOT APECIFIED
     Route: 048
  58. PROCHLORPERAZINE [Suspect]
     Active Substance: PROCHLORPERAZINE
     Dosage: DOSAGE FORM NOT APECIFIED
     Route: 048
  59. PROCHLORPERAZINE [Suspect]
     Active Substance: PROCHLORPERAZINE
     Dosage: DOSAGE FORM NOT APECIFIED
     Route: 048
  60. PROCHLORPERAZINE [Suspect]
     Active Substance: PROCHLORPERAZINE
     Dosage: DOSAGE FORM NOT APECIFIED
     Route: 065
  61. PRUCALOPRIDE SUCCINATE [Suspect]
     Active Substance: PRUCALOPRIDE SUCCINATE
     Indication: Vomiting
     Dosage: UNK
     Route: 065
  62. PRUCALOPRIDE SUCCINATE [Suspect]
     Active Substance: PRUCALOPRIDE SUCCINATE
     Indication: Nausea
     Dosage: DOSAGE FORM NOT SPECIFIED
     Route: 065
  63. PRUCALOPRIDE SUCCINATE [Suspect]
     Active Substance: PRUCALOPRIDE SUCCINATE
     Dosage: UNK
     Route: 065
  64. PRUCALOPRIDE SUCCINATE [Suspect]
     Active Substance: PRUCALOPRIDE SUCCINATE
     Dosage: DOSAGE FORM: FILM-COATED TABLET
     Route: 065
  65. PRUCALOPRIDE SUCCINATE [Suspect]
     Active Substance: PRUCALOPRIDE SUCCINATE
     Dosage: DOSAGE FORM: FILM-COATED TABLET
     Route: 065
  66. PRUCALOPRIDE SUCCINATE [Suspect]
     Active Substance: PRUCALOPRIDE SUCCINATE
     Dosage: UNK
     Route: 065
  67. PRUCALOPRIDE SUCCINATE [Suspect]
     Active Substance: PRUCALOPRIDE SUCCINATE
     Dosage: UNK
     Route: 065
  68. PRUCALOPRIDE SUCCINATE [Suspect]
     Active Substance: PRUCALOPRIDE SUCCINATE
     Dosage: DOSAGE FORM NOT SPECIFIED
     Route: 065
  69. PRUCALOPRIDE SUCCINATE [Suspect]
     Active Substance: PRUCALOPRIDE SUCCINATE
     Dosage: UNK
     Route: 065
  70. PRUCALOPRIDE SUCCINATE [Suspect]
     Active Substance: PRUCALOPRIDE SUCCINATE
     Dosage: DOSAGE FORM: FILM-COATED TABLET
     Route: 065
  71. PRUCALOPRIDE SUCCINATE [Suspect]
     Active Substance: PRUCALOPRIDE SUCCINATE
     Dosage: DOSAGE FORM: FILM-COATED TABLET
     Route: 065
  72. PRUCALOPRIDE SUCCINATE [Suspect]
     Active Substance: PRUCALOPRIDE SUCCINATE
     Dosage: UNK
     Route: 065
  73. PRUCALOPRIDE SUCCINATE [Suspect]
     Active Substance: PRUCALOPRIDE SUCCINATE
     Dosage: UNK
     Route: 065
  74. PRUCALOPRIDE SUCCINATE [Suspect]
     Active Substance: PRUCALOPRIDE SUCCINATE
     Dosage: DOSAGE FORM NOT SPECIFIED
     Route: 065
  75. PRUCALOPRIDE SUCCINATE [Suspect]
     Active Substance: PRUCALOPRIDE SUCCINATE
     Dosage: UNK
     Route: 065
  76. PRUCALOPRIDE SUCCINATE [Suspect]
     Active Substance: PRUCALOPRIDE SUCCINATE
     Dosage: DOSAGE FORM: FILM-COATED TABLET
     Route: 065
  77. PRUCALOPRIDE SUCCINATE [Suspect]
     Active Substance: PRUCALOPRIDE SUCCINATE
     Dosage: DOSAGE FORM: FILM-COATED TABLET
     Route: 065
  78. PRUCALOPRIDE SUCCINATE [Suspect]
     Active Substance: PRUCALOPRIDE SUCCINATE
     Dosage: UNK
     Route: 065
  79. PRUCALOPRIDE SUCCINATE [Suspect]
     Active Substance: PRUCALOPRIDE SUCCINATE
     Dosage: UNK
     Route: 065
  80. PRUCALOPRIDE SUCCINATE [Suspect]
     Active Substance: PRUCALOPRIDE SUCCINATE
     Dosage: DOSAGE FORM NOT SPECIFIED
     Route: 065
  81. PRUCALOPRIDE SUCCINATE [Suspect]
     Active Substance: PRUCALOPRIDE SUCCINATE
     Dosage: UNK
     Route: 065
  82. PRUCALOPRIDE SUCCINATE [Suspect]
     Active Substance: PRUCALOPRIDE SUCCINATE
     Dosage: DOSAGE FORM: FILM-COATED TABLET
     Route: 065
  83. PRUCALOPRIDE SUCCINATE [Suspect]
     Active Substance: PRUCALOPRIDE SUCCINATE
     Dosage: DOSAGE FORM: FILM-COATED TABLET
     Route: 065
  84. PRUCALOPRIDE SUCCINATE [Suspect]
     Active Substance: PRUCALOPRIDE SUCCINATE
     Dosage: UNK
     Route: 065
  85. VANCOMYCIN [Concomitant]
     Active Substance: VANCOMYCIN
     Indication: Diarrhoea
     Route: 048

REACTIONS (4)
  - Off label use [Unknown]
  - Treatment failure [Unknown]
  - Drug ineffective for unapproved indication [Unknown]
  - Product use in unapproved indication [Unknown]
